FAERS Safety Report 7601292-8 (Version None)
Quarter: 2011Q3

REPORT INFORMATION
  Report Type: 
  Country: None (occurrence: None)
  Receive Date: 20110711
  Receipt Date: 20110629
  Transmission Date: 20111222
  Serious: Yes (Other)
  Sender: FDA-Public Use
  Company Number: GB-JNJFOC-20110700948

PATIENT

DRUGS (1)
  1. REMICADE [Suspect]
     Indication: PERIPHERAL SENSORY NEUROPATHY
     Route: 042

REACTIONS (2)
  - OFF LABEL USE [None]
  - DEAFNESS [None]
